FAERS Safety Report 4496367-9 (Version None)
Quarter: 2004Q4

REPORT INFORMATION
  Report Type: 
  Country: None (occurrence: None)
  Receive Date: 20041108
  Receipt Date: 20041108
  Transmission Date: 20050328
  Serious: Yes (Life-Threatening, Hospitalization)
  Sender: FDA-Public Use
  Company Number: None

PATIENT
  Age: 40 Year
  Sex: Male
  Weight: 83.9154 kg

DRUGS (1)
  1. CELEXA [Suspect]
     Indication: INSOMNIA
     Dosage: 20 MG  1 TAB ORAL
     Route: 048
     Dates: start: 20030712, end: 20040203

REACTIONS (10)
  - AMNESIA [None]
  - APATHY [None]
  - BRONCHITIS [None]
  - FUNGAL INFECTION [None]
  - HALLUCINATION [None]
  - MANIA [None]
  - MIGRAINE [None]
  - PNEUMONIA [None]
  - PUPILLARY DISORDER [None]
  - SUICIDE ATTEMPT [None]
